FAERS Safety Report 7907069-8 (Version None)
Quarter: 2011Q4

REPORT INFORMATION
  Report Type: 
  Country: None (occurrence: None)
  Receive Date: 20111110
  Receipt Date: 20110210
  Transmission Date: 20120403
  Serious: No
  Sender: FDA-Public Use
  Company Number: US-BAYER-2011-014559

PATIENT
  Sex: Female

DRUGS (3)
  1. CLIMARA [Suspect]
     Indication: HOT FLUSH
     Dosage: 0.05 MG/D, OW
     Route: 061
     Dates: start: 20100701, end: 20100801
  2. CLIMARA [Suspect]
     Dosage: 0.05 MG/D, OW
     Route: 061
     Dates: start: 20101201
  3. CLIMARA [Suspect]
     Dosage: UNK
     Dates: start: 20110101

REACTIONS (2)
  - PRODUCT ADHESION ISSUE [None]
  - APPLICATION SITE IRRITATION [None]
